FAERS Safety Report 6912019-7 (Version None)
Quarter: 2010Q3

REPORT INFORMATION
  Report Type: 
  Country: None (occurrence: None)
  Receive Date: 20100806
  Receipt Date: 20071027
  Transmission Date: 20110219
  Serious: No
  Sender: FDA-Public Use
  Company Number: US-PFIZER INC-2007090823

PATIENT
  Sex: Male
  Weight: 66.363 kg

DRUGS (2)
  1. DILANTIN [Suspect]
     Indication: EPILEPSY
  2. TEGRETOL [Concomitant]

REACTIONS (3)
  - ABDOMINAL PAIN [None]
  - DIZZINESS [None]
  - MUSCULOSKELETAL STIFFNESS [None]
